FAERS Safety Report 5306920-8 (Version None)
Quarter: 2007Q2

REPORT INFORMATION
  Report Type: 
  Country: None (occurrence: None)
  Receive Date: 20070419
  Receipt Date: 20070409
  Transmission Date: 20071010
  Serious: Yes (Hospitalization)
  Sender: FDA-Public Use
  Company Number: 2007-00987

PATIENT
  Age: 52 Year
  Sex: Female

DRUGS (44)
  1. VELCADE [Suspect]
     Indication: MULTIPLE MYELOMA
     Dates: start: 20060412
  2. VELCADE [Suspect]
     Indication: MULTIPLE MYELOMA
     Dates: start: 20060518
  3. DEXAMETHASONE [Suspect]
     Indication: MULTIPLE MYELOMA
     Dosage: SEE IMAGE
     Dates: start: 20060906, end: 20060909
  4. DEXAMETHASONE [Suspect]
     Indication: MULTIPLE MYELOMA
     Dosage: SEE IMAGE
     Dates: start: 20060412
  5. DEXAMETHASONE [Suspect]
     Indication: MULTIPLE MYELOMA
     Dosage: SEE IMAGE
     Dates: start: 20060518
  6. THALIDOMIDE [Suspect]
     Indication: MULTIPLE MYELOMA
     Dates: start: 20060412
  7. THALIDOMIDE [Suspect]
     Indication: MULTIPLE MYELOMA
     Dates: start: 20060518
  8. CISPLATIN [Suspect]
     Indication: MULTIPLE MYELOMA
     Dates: start: 20060412
  9. CISPLATIN [Suspect]
     Indication: MULTIPLE MYELOMA
     Dates: start: 20060518
  10. DOXORUBICIN HCL [Suspect]
     Indication: MULTIPLE MYELOMA
     Dates: start: 20060412
  11. DOXORUBICIN HCL [Suspect]
     Indication: MULTIPLE MYELOMA
     Dates: start: 20060518
  12. CYCLOPHOSPHAMIDE [Suspect]
     Indication: MULTIPLE MYELOMA
     Dates: start: 20060412
  13. CYCLOPHOSPHAMIDE [Suspect]
     Indication: MULTIPLE MYELOMA
     Dates: start: 20060518
  14. ETOPOSIDE [Suspect]
     Indication: MULTIPLE MYELOMA
     Dates: start: 20060412
  15. ETOPOSIDE [Suspect]
     Indication: MULTIPLE MYELOMA
     Dates: start: 20060518
  16. MELPHALAN (MELPHALAN) VIAL [Suspect]
     Indication: MULTIPLE MYELOMA
     Dosage: 200.00 MG/M2, UNK, INTRAVENOUS
     Route: 042
     Dates: start: 20060628
  17. MELPHALAN (MELPHALAN) VIAL [Suspect]
     Indication: MULTIPLE MYELOMA
     Dosage: 200.00 MG/M2, UNK, INTRAVENOUS
     Route: 042
     Dates: start: 20060907
  18. ACYCLOVIR [Concomitant]
  19. FOLIC ACID [Concomitant]
  20. MULTIVITAMINS (ERGOCALCIFEROL, PANTHENOL, NICOTINAMIDE, RIBOFLAVIN, TH [Concomitant]
  21. PROTONIX [Concomitant]
  22. ARANESP [Concomitant]
  23. VITAMIN B12 (CYANOCOBALAMINE) [Concomitant]
  24. FERROUS SULFATE TAB [Concomitant]
  25. ATIVAN [Concomitant]
  26. AREDIA [Concomitant]
  27. POTASSIUM CHLORIDE [Concomitant]
  28. LOVENOX [Concomitant]
  29. MYCELEX [Concomitant]
  30. CALCIUM CITRATE (CALCIUM CITRATE) [Concomitant]
  31. VITAMIN D [Concomitant]
  32. TRIAMCINOLONE ACETONIDE W/NYSTATIN (TRIAMCINOLONE ACETONIDE, NYSTATIN) [Concomitant]
  33. NEOMYCIN SULFATE [Concomitant]
  34. DOXYCYCLINE [Concomitant]
  35. MAGNESIUM OXIDE (MAGNESIUM OXIDE) [Concomitant]
  36. KYTRIL [Concomitant]
  37. AMBIEN [Concomitant]
  38. OCTREOTIDE ACETATE [Concomitant]
  39. FLAGYL [Concomitant]
  40. VANOCIN [Concomitant]
  41. LEVSIN (HYOSCYAMINE SULFATE) [Concomitant]
  42. PRIMAXIN [Concomitant]
  43. VANCOMYCIN HYDROCHLORIDE [Concomitant]
  44. AMBISOME [Concomitant]

REACTIONS (4)
  - ATELECTASIS [None]
  - COLITIS [None]
  - JEJUNITIS [None]
  - PYREXIA [None]
